FAERS Safety Report 8717031 (Version 3)
Quarter: 2012Q4

REPORT INFORMATION
  Report Type: Spontaneous
  Country: US (occurrence: None)
  Receive Date: 20120726
  Receipt Date: 20120815
  Transmission Date: 20130627
  Serious: Yes (Death, Other)
  Sender: FDA-Public Use
  Company Number: TPA2012A02574

PATIENT
  Age: 68 Year
  Sex: Female
  Weight: 77.11 kg

DRUGS (6)
  1. ACTOS [Suspect]
     Indication: TYPE 2 DIABETES MELLITUS
     Dates: start: 200811, end: 201008
  2. METFORMIN HYDROCHLORIDE [Concomitant]
  3. INSULIN GLARGINE [Concomitant]
  4. SITAGLIPTIN PHOSPHATE [Concomitant]
  5. LEVOFLOXACIN [Concomitant]
  6. FUROSEMIDE [Concomitant]

REACTIONS (3)
  - Bladder cancer [None]
  - Hypertension [None]
  - Blood cholesterol increased [None]
